FAERS Safety Report 8524704 (Version 5)
Quarter: 2014Q1

REPORT INFORMATION
  Report Type: Report from Study
  Country: DE (occurrence: DE)
  Receive Date: 20120423
  Receipt Date: 20140204
  Transmission Date: 20141002
  Serious: Yes (Hospitalization, Other)
  Sender: FDA-Public Use
  Company Number: DE-BIOGENIDEC-2012BI012851

PATIENT
  Age: 55 Year
  Sex: Female

DRUGS (5)
  1. TYSABRI [Suspect]
     Indication: MULTIPLE SCLEROSIS
     Route: 042
     Dates: start: 20080904, end: 20101109
  2. TYSABRI [Suspect]
     Indication: MULTIPLE SCLEROSIS
     Route: 042
     Dates: end: 20130301
  3. GABAPENTIN [Concomitant]
  4. CLEXANE [Concomitant]
  5. PANTOZOL [Concomitant]

REACTIONS (2)
  - Ovarian adenoma [Recovered/Resolved]
  - Borderline ovarian tumour [Recovered/Resolved]
